FAERS Safety Report 4651982-4 (Version None)
Quarter: 2005Q2

REPORT INFORMATION
  Report Type: 
  Country: None (occurrence: None)
  Receive Date: 20050502
  Receipt Date: 20050419
  Transmission Date: 20051028
  Serious: Yes (Other)
  Sender: FDA-Public Use
  Company Number: 2005047730

PATIENT
  Age: 41 Year
  Sex: Female
  Weight: 56.246 kg

DRUGS (4)
  1. TARTAR CONTROL LISTERINE MOUTHWASH (MENTHOL, METHYL SALICYLATE, EUCALY [Suspect]
     Dosage: ORAL TOPICAL
     Route: 048
     Dates: start: 20050201
  2. LISTERINE ANTISEPTIC MOUTHWASH (MENTHOL, METHYL SALICYLATE, EUCALYPTOL [Suspect]
     Dosage: ORAL TOPICAL
     Route: 048
     Dates: start: 20030101
  3. ACORBIC ACID (ACORBIC ACID) [Concomitant]
  4. IBUPROFEN [Concomitant]

REACTIONS (23)
  - ANXIETY [None]
  - BACTERIAL INFECTION [None]
  - CHEILITIS [None]
  - CHEST PAIN [None]
  - DIZZINESS [None]
  - DYSPNOEA [None]
  - ERYTHEMA [None]
  - ESCHERICHIA INFECTION [None]
  - FOOD ALLERGY [None]
  - GLOSSODYNIA [None]
  - HEART RATE INCREASED [None]
  - HERPES VIRUS INFECTION [None]
  - HYPERHIDROSIS [None]
  - HYPERSENSITIVITY [None]
  - HYPOAESTHESIA ORAL [None]
  - LIP ULCERATION [None]
  - NASAL DISORDER [None]
  - PARAESTHESIA ORAL [None]
  - SCAR [None]
  - SWELLING FACE [None]
  - TONGUE HAEMORRHAGE [None]
  - TONGUE ULCERATION [None]
  - TREMOR [None]
